FAERS Safety Report 14712132 (Version 1)
Quarter: 2018Q2

REPORT INFORMATION
  Report Type: Spontaneous
  Country: US (occurrence: US)
  Receive Date: 20180404
  Receipt Date: 20180404
  Transmission Date: 20180711
  Serious: No
  Sender: FDA-Public Use
  Company Number: US-SA-2017SA077275

PATIENT
  Age: 58 Year
  Sex: Male
  Weight: 104.36 kg

DRUGS (1)
  1. ALLEGRA-D 24 HOUR [Suspect]
     Active Substance: FEXOFENADINE HYDROCHLORIDE\PSEUDOEPHEDRINE HYDROCHLORIDE
     Indication: SEASONAL ALLERGY
     Dosage: 180 MG / 240?MG
     Route: 065
     Dates: start: 20170424, end: 20170425

REACTIONS (2)
  - Eating disorder [Recovered/Resolved]
  - Product use complaint [Unknown]

NARRATIVE: CASE EVENT DATE: 20170424
